FAERS Safety Report 9019589 (Version 1)
Quarter: 2013Q1

REPORT INFORMATION
  Report Type: Spontaneous
  Country: US (occurrence: US)
  Receive Date: 20130118
  Receipt Date: 20130118
  Transmission Date: 20140127
  Serious: Yes (Death)
  Sender: FDA-Public Use
  Company Number: US-SHIONOGI, INC-2013000064

PATIENT
  Age: 56 Year
  Sex: Female

DRUGS (10)
  1. NAPROXEN [Suspect]
     Dosage: UNK
  2. ANTIDEPRESSANTS [Suspect]
     Dosage: UNK
  3. CITALOPRAM [Suspect]
     Dosage: UNK
  4. LISINOPRIL [Suspect]
     Dosage: UNK
  5. CLONAZEPAM [Suspect]
     Dosage: UNK
  6. GABAPENTIN [Suspect]
     Dosage: UNK
  7. CYCLOBENZAPRINE [Suspect]
     Dosage: UNK
  8. BUTALBITAL, ACETAMINOPHEN + CAFFEINE [Suspect]
     Dosage: UNK
  9. ZOLPIDEM [Suspect]
     Dosage: UNK
  10. SUMATRIPTAN [Suspect]
     Dosage: UNK

REACTIONS (1)
  - Completed suicide [Fatal]
